FAERS Safety Report 7388093-3 (Version None)
Quarter: 2011Q2

REPORT INFORMATION
  Report Type: 
  Country: None (occurrence: None)
  Receive Date: 20110401
  Receipt Date: 20110318
  Transmission Date: 20111010
  Serious: Yes (Death, Life-Threatening, Hospitalization, Other)
  Sender: FDA-Public Use
  Company Number: US-ELI_LILLY_AND_COMPANY-US201003002146

PATIENT
  Sex: Male

DRUGS (28)
  1. RAMIPRIL [Concomitant]
     Dosage: 20 MG, DAILY (1/D)
  2. CARBIDOPA AND LEVODOPA [Concomitant]
     Dosage: UNK, 3/D
  3. LIDODERM [Concomitant]
     Dosage: 2 D/F, DAILY (1/D)
  4. LIPITOR [Concomitant]
     Dosage: 20 MG, DAILY (1/D)
  5. AMLODIPINE BESYLATE [Concomitant]
     Dosage: 10 MG, DAILY (1/D)
  6. MIRALAX [Concomitant]
     Dosage: UNK, DAILY (1/D)
  7. BYETTA [Suspect]
     Dosage: 5 UG, 2/D
  8. CENTRUM SILVER [Concomitant]
  9. OMEPRAZOLE [Concomitant]
     Dosage: 40 MG, DAILY (1/D)
  10. FORTEO [Suspect]
     Dosage: 20 UG, DAILY (1/D)
     Dates: end: 20110225
  11. TRAMADOL [Concomitant]
     Dosage: 50 MG, OTHER
  12. MIRTAZAPINE [Concomitant]
     Dosage: 15 MG, DAILY (1/D)
  13. FERROUS SULFATE TAB [Concomitant]
     Dosage: 325 MG, DAILY (1/D)
  14. TRENTAL [Concomitant]
     Dosage: 400 MG, 2/D
  15. ALBUTEROL [Concomitant]
     Dosage: 90 UG, AS NEEDED
  16. CYMBALTA [Suspect]
     Indication: DEPRESSION
     Dosage: 60 MG, 2/D
  17. HUMAN INSULIN [Suspect]
     Indication: DIABETES MELLITUS
     Dates: start: 20090101
  18. PREGABALIN [Concomitant]
     Dosage: 150 MG, 3/D
     Dates: start: 20110201
  19. TRAMADOL [Concomitant]
     Dosage: 50 MG, 4/D
  20. LEVEMIR [Concomitant]
     Dosage: 45 IU, DAILY (1/D)
  21. VITAMIN D2 [Concomitant]
     Dosage: 2000 MG, DAILY (1/D)
  22. ASPIRIN [Concomitant]
     Dosage: 81 MG, DAILY (1/D)
  23. CALCIUM + VITAMIN D [Concomitant]
     Dosage: 600 MG, UNK
  24. CARVEDILOL [Concomitant]
     Dosage: 25 MG, 2/D
  25. FORTEO [Suspect]
     Indication: OSTEOPOROSIS
     Dosage: 20 UG, DAILY (1/D)
     Dates: start: 20091201
  26. PREGABALIN [Concomitant]
     Dosage: 150 MG, 2/D
  27. FUROSEMIDE [Concomitant]
     Dosage: 40 MG, DAILY (1/D)
  28. ADVAIR DISKUS 100/50 [Concomitant]
     Dosage: UNK, 2/D

REACTIONS (10)
  - INJECTION SITE PAIN [None]
  - PAIN [None]
  - CARDIAC ARREST [None]
  - DYSPNOEA [None]
  - URINARY TRACT INFECTION [None]
  - BLOOD POTASSIUM INCREASED [None]
  - RENAL FAILURE [None]
  - FALL [None]
  - MYOCARDIAL INFARCTION [None]
  - RIB FRACTURE [None]
